FAERS Safety Report 9614900 (Version 1)
Quarter: 2013Q4

REPORT INFORMATION
  Report Type: Spontaneous
  Country: US (occurrence: US)
  Receive Date: 20131011
  Receipt Date: 20131011
  Transmission Date: 20140711
  Serious: No
  Sender: FDA-Public Use
  Company Number: US-PFIZER INC-2013292118

PATIENT
  Age: 36 Year
  Sex: Female

DRUGS (2)
  1. LYRICA [Suspect]
     Dosage: 50 MG, 2X/DAY
     Dates: start: 2013
  2. LYRICA [Suspect]
     Dosage: 75 MG, 2X/DAY
     Dates: start: 201310, end: 201310

REACTIONS (1)
  - Hyperventilation [Unknown]
